FAERS Safety Report 14684148 (Version 3)
Quarter: 2019Q3

REPORT INFORMATION
  Report Type: Spontaneous
  Country: ES (occurrence: ES)
  Receive Date: 20180327
  Receipt Date: 20190816
  Transmission Date: 20191004
  Serious: Yes (Hospitalization, Other)
  Sender: FDA-Public Use
  Company Number: ES-GLAXOSMITHKLINE-ES2018050448

PATIENT
  Age: 66 Year
  Sex: Male

DRUGS (13)
  1. PACLITAXEL. [Concomitant]
     Active Substance: PACLITAXEL
     Indication: OESOPHAGEAL CARCINOMA
     Dosage: CYCLICAL
     Route: 065
  2. DEXCHLORPHENIRAMINE [Concomitant]
     Active Substance: DEXCHLORPHENIRAMINE
     Indication: PREMEDICATION
     Dosage: IN TOTAL
     Route: 042
     Dates: start: 20161125, end: 20161125
  3. DIGOXINA [Concomitant]
     Active Substance: DIGOXIN
     Indication: PRODUCT USED FOR UNKNOWN INDICATION
     Dosage: 0.25 MG, UNK
     Route: 048
  4. METFORMIN [Concomitant]
     Active Substance: METFORMIN HYDROCHLORIDE
     Indication: TYPE 2 DIABETES MELLITUS
     Dosage: 0.85 G, UNK
     Route: 048
  5. OMEPRAZOLE. [Concomitant]
     Active Substance: OMEPRAZOLE
     Indication: PRODUCT USED FOR UNKNOWN INDICATION
     Dosage: UNK
     Route: 065
  6. SIMVASTATIN. [Concomitant]
     Active Substance: SIMVASTATIN
     Indication: DYSLIPIDAEMIA
     Dosage: 10 MG, UNK
     Route: 048
  7. HYDROCORTISONE. [Concomitant]
     Active Substance: HYDROCORTISONE
     Indication: PRODUCT USED FOR UNKNOWN INDICATION
     Dosage: UNK
     Route: 065
  8. ONDANSETRON [Concomitant]
     Active Substance: ONDANSETRON
     Dosage: UNK
     Route: 065
  9. BROMAZEPAM [Concomitant]
     Active Substance: BROMAZEPAM
     Indication: PRODUCT USED FOR UNKNOWN INDICATION
     Dosage: UNK
     Route: 065
  10. CARBOPLATIN. [Concomitant]
     Active Substance: CARBOPLATIN
     Indication: OESOPHAGEAL CARCINOMA
     Dosage: CYCLICAL
     Route: 065
  11. CLEXANE [Concomitant]
     Active Substance: ENOXAPARIN SODIUM
     Indication: ATRIAL FIBRILLATION
     Dosage: 40 IU, UNK
     Route: 058
  12. DEXAMETHASONE. [Concomitant]
     Active Substance: DEXAMETHASONE
     Dosage: UNK
     Route: 065
  13. RANITIDINE. [Suspect]
     Active Substance: RANITIDINE
     Indication: PREMEDICATION
     Dosage: 5 ML, IN TOTAL
     Route: 042
     Dates: start: 20161125, end: 20161125

REACTIONS (1)
  - Kounis syndrome [Recovered/Resolved]

NARRATIVE: CASE EVENT DATE: 20161125
